FAERS Safety Report 6307884-0 (Version None)
Quarter: 2009Q3

REPORT INFORMATION
  Report Type: 
  Country: None (occurrence: None)
  Receive Date: 20090813
  Receipt Date: 20090810
  Transmission Date: 20100115
  Serious: Yes (Death, Other)
  Sender: FDA-Public Use
  Company Number: US-ASTRAZENECA-2008UW25367

PATIENT
  Age: 220 Month
  Sex: Male
  Weight: 110.7 kg

DRUGS (8)
  1. SEROQUEL [Suspect]
     Indication: ANXIETY
     Dosage: UPTO 1500 MG DAILY
     Route: 048
     Dates: start: 20060901
  2. SEROQUEL [Suspect]
     Indication: SCHIZOPHRENIA
     Dosage: UPTO 1500 MG DAILY
     Route: 048
     Dates: start: 20060901
  3. SEROQUEL [Suspect]
     Indication: BIPOLAR DISORDER
     Dosage: UPTO 1500 MG DAILY
     Route: 048
     Dates: start: 20060901
  4. GEODON [Concomitant]
     Dates: start: 20060401, end: 20061201
  5. HALDOL [Concomitant]
     Dates: start: 20060401, end: 20061201
  6. SYMBYAX [Concomitant]
     Dates: start: 20060401, end: 20061201
  7. ZYPREXA [Concomitant]
     Dates: start: 20060401, end: 20061201
  8. DEPAKOTE [Concomitant]
     Dosage: UP TO 1500 MG
     Dates: start: 20060401, end: 20061201

REACTIONS (2)
  - PANCREATITIS [None]
  - PANCREATITIS NECROTISING [None]
